FAERS Safety Report 18057434 (Version 1)
Quarter: 2020Q3

REPORT INFORMATION
  Report Type: Other
  Country: ES (occurrence: ES)
  Receive Date: 20200723
  Receipt Date: 20200723
  Transmission Date: 20201103
  Serious: Yes (Life-Threatening)
  Sender: FDA-Public Use
  Company Number: ES-CADILA HEALTHCARE LIMITED-ES-ZYDUS-053766

PATIENT

DRUGS (3)
  1. AZITHROMYCIN ANHYDROUS. [Suspect]
     Active Substance: AZITHROMYCIN ANHYDROUS
     Indication: COVID-19 TREATMENT
     Dosage: 500 MG/24 EL PRIMER DIA Y LUEGO BAJA DOSIS A 250 MG/24
     Route: 065
     Dates: start: 20200406, end: 20200414
  2. HIDROXICLOROQUINA [HYDROXYCHLOROQUINE] [Suspect]
     Active Substance: HYDROXYCHLOROQUINE
     Indication: COVID-19 TREATMENT
     Dosage: 400 MILLIGRAM, QD
     Route: 065
     Dates: start: 20200406, end: 20200414
  3. LOPINAVIR [Suspect]
     Active Substance: LOPINAVIR
     Indication: COVID-19 TREATMENT
     Dosage: 200/50 CADA 2 COMPRIMIDOS CADA 12 HORAS
     Route: 065
     Dates: start: 20200406, end: 20200409

REACTIONS (1)
  - Atrial fibrillation [Unknown]

NARRATIVE: CASE EVENT DATE: 20200421
